FAERS Safety Report 6989816-5 (Version None)
Quarter: 2010Q3

REPORT INFORMATION
  Report Type: 
  Country: None (occurrence: None)
  Receive Date: 20100916
  Receipt Date: 20100311
  Transmission Date: 20110219
  Serious: Yes (Hospitalization)
  Sender: FDA-Public Use
  Company Number: US-PFIZER INC-2010014660

PATIENT
  Sex: Female
  Weight: 104.76 kg

DRUGS (3)
  1. ARTHROTEC [Suspect]
     Dosage: 75 MG, UNK
     Route: 048
     Dates: start: 20100120
  2. LYRICA [Suspect]
     Route: 048
     Dates: start: 20100120
  3. LISINOPRIL [Concomitant]
     Indication: HYPERTENSION
     Route: 048

REACTIONS (4)
  - LOWER RESPIRATORY TRACT INFECTION [None]
  - MALAISE [None]
  - NASOPHARYNGITIS [None]
  - NAUSEA [None]
